FAERS Safety Report 8073950-5 (Version None)
Quarter: 2011Q4

REPORT INFORMATION
  Report Type: 
  Country: None (occurrence: None)
  Receive Date: 20111221
  Receipt Date: 20110414
  Transmission Date: 20120403
  Serious: Yes (Hospitalization)
  Sender: FDA-Public Use
  Company Number: PHHY2010US27253

PATIENT
  Age: 37 Year
  Sex: Male

DRUGS (5)
  1. HYDROXYUREA [Concomitant]
  2. DILAUDID [Concomitant]
  3. IBUPROFEN (ADVIL) [Concomitant]
  4. EXJADE [Suspect]
     Indication: SICKLE CELL ANAEMIA
     Dosage: 1500 MG, QD, ORAL
     Route: 048
     Dates: start: 20100325
  5. FOLIC ACID [Concomitant]

REACTIONS (1)
  - SICKLE CELL ANAEMIA WITH CRISIS [None]
